FAERS Safety Report 25060390 (Version 1)
Quarter: 2025Q1

REPORT INFORMATION
  Report Type: Spontaneous
  Country: US (occurrence: US)
  Receive Date: 20250310
  Receipt Date: 20250310
  Transmission Date: 20250408
  Serious: No
  Sender: SANOFI AVENTIS
  Company Number: US-SANOFI-02438568

PATIENT
  Sex: Female

DRUGS (2)
  1. DUPIXENT [Suspect]
     Active Substance: DUPILUMAB
     Indication: Toxic erythema of chemotherapy
     Dosage: 300 MG, Q15D
  2. DUPIXENT [Suspect]
     Active Substance: DUPILUMAB
     Indication: Urethral cancer

REACTIONS (1)
  - Off label use [Unknown]
